FAERS Safety Report 16942078 (Version 3)
Quarter: 2019Q4

REPORT INFORMATION
  Report Type: Report from Study
  Country: AU (occurrence: AU)
  Receive Date: 20191021
  Receipt Date: 20191119
  Transmission Date: 20200122
  Serious: Yes (Hospitalization)
  Sender: FDA-Public Use
  Company Number: AU-VERTEX PHARMACEUTICALS-2019-009939

PATIENT
  Age: 34 Year
  Sex: Female
  Weight: 66 kg

DRUGS (46)
  1. NILSTAT [NYSTATIN] [Concomitant]
     Indication: CANDIDA INFECTION
     Dosage: UNK, PRN
     Route: 061
     Dates: start: 2003
  2. INNER HEALTH PLUS [Concomitant]
     Dosage: 1 DOSAGE FORM, PRN
     Route: 048
     Dates: start: 2011
  3. DOCUSATE;SENNA [Concomitant]
     Indication: CONSTIPATION
     Dosage: 50/8 MG
     Route: 048
  4. OTODEX [Concomitant]
     Indication: INFLAMMATION
     Dosage: 3 DROPS, TID
  5. VX-659 [Suspect]
     Active Substance: INVESTIGATIONAL PRODUCT
     Indication: CYSTIC FIBROSIS
     Dosage: UNK
     Route: 048
     Dates: start: 20190117
  6. CLEXANE [Concomitant]
     Active Substance: ENOXAPARIN SODIUM
     Indication: PROPHYLAXIS
     Dosage: 65-40 MG, BID
     Route: 058
     Dates: start: 20191012, end: 20191017
  7. HEPARIN [Concomitant]
     Active Substance: HEPARIN SODIUM
     Indication: BLOOD POTASSIUM INCREASED
     Dosage: UNK, PRN
     Route: 042
     Dates: start: 20191013, end: 20191017
  8. SERTRALINE [Concomitant]
     Active Substance: SERTRALINE HYDROCHLORIDE
     Indication: ANXIETY
     Dosage: 100 UNK
  9. VITAMON K [Concomitant]
     Dosage: 10 MG, PRN
     Route: 048
     Dates: start: 1995
  10. LOVATADIN [Concomitant]
     Indication: SINUSITIS
     Dosage: 10 MG, QD
     Route: 048
     Dates: start: 2016
  11. PARACETAMOL [Concomitant]
     Active Substance: ACETAMINOPHEN
     Dosage: 1 GRAM, QD
     Route: 042
     Dates: start: 20191011, end: 20191012
  12. IBUPROFEN. [Concomitant]
     Active Substance: IBUPROFEN
     Indication: PAIN
     Dosage: 400 MG, PRN
     Route: 048
     Dates: start: 2002
  13. TRANEXAMIC ACID. [Concomitant]
     Active Substance: TRANEXAMIC ACID
     Indication: HAEMOPTYSIS
     Dosage: 500 MG, PRN
     Route: 048
     Dates: start: 2002
  14. FLO SINUS CARE [Concomitant]
     Indication: SINUSITIS
     Dosage: 1 SACHET, PRN
     Route: 045
     Dates: start: 2008
  15. SODIUM CHLORIDE. [Concomitant]
     Active Substance: SODIUM CHLORIDE
     Dosage: 4 MILLILITER, BID
     Route: 055
  16. ESOMEPRAZOLE. [Concomitant]
     Active Substance: ESOMEPRAZOLE MAGNESIUM
     Indication: GASTROOESOPHAGEAL REFLUX DISEASE
     Dosage: 40 MG, QD
     Route: 048
     Dates: start: 2003
  17. COLOXYL C SENNA [Concomitant]
     Active Substance: DOCUSATE SODIUM\SENNOSIDES A AND B
     Indication: CONSTIPATION
     Dosage: 2 DOSAGE FORM, BID
     Route: 048
  18. HORSERADISH. [Concomitant]
     Active Substance: HORSERADISH
     Dosage: 1 DOSAGE FORM, PRN
     Route: 048
     Dates: start: 2002
  19. NASONEX [Concomitant]
     Active Substance: MOMETASONE FUROATE
     Indication: SINUS DISORDER
     Dosage: 1 INTERNATIONAL UNIT, PRN
     Route: 045
     Dates: start: 20190126, end: 20190205
  20. VENTOLINE [SALBUTAMOL] [Concomitant]
     Active Substance: ALBUTEROL SULFATE
     Indication: CYSTIC FIBROSIS LUNG
     Dosage: 2-4 PUFFS, PRN
     Dates: start: 1990
  21. SALBUTAMOL [Concomitant]
     Active Substance: ALBUTEROL
     Dosage: 100 MICROGRAM
  22. OSTEVIT-D [Concomitant]
     Dosage: 1 DOSAGE FORM, QD
  23. COLECALCIFEROL [Concomitant]
     Active Substance: CHOLECALCIFEROL
     Dosage: 1 DOSAGE FORM, QD
  24. KONAKION [Concomitant]
     Active Substance: PHYTONADIONE
     Dosage: 1 DOSAGE FORM, PRN
  25. MAGNESIUM [Concomitant]
     Active Substance: MAGNESIUM
     Indication: MINERAL SUPPLEMENTATION
     Dosage: 10 MILLIMOLE
     Route: 042
     Dates: start: 20191011, end: 20191016
  26. MOVICOL PLAIN [Concomitant]
     Active Substance: POLYETHYLENE GLYCOL 3350\POTASSIUM CHLORIDE\SODIUM BICARBONATE\SODIUM CHLORIDE
     Indication: CONSTIPATION
     Dosage: 1 SACHET, PRN
     Dates: start: 2008
  27. MOVICOL PLAIN [Concomitant]
     Active Substance: POLYETHYLENE GLYCOL 3350\POTASSIUM CHLORIDE\SODIUM BICARBONATE\SODIUM CHLORIDE
     Indication: ABDOMINAL DISTENSION
  28. VITABDECK [Concomitant]
     Dosage: 2 DOSAGE FORM, QD
     Route: 048
     Dates: start: 2009
  29. SERTRALINE [Concomitant]
     Active Substance: SERTRALINE HYDROCHLORIDE
     Indication: DEPRESSION
     Dosage: 200 MG, QD
     Route: 048
     Dates: start: 2015
  30. CREON [Concomitant]
     Active Substance: PANCRELIPASE AMYLASE\PANCRELIPASE LIPASE\PANCRELIPASE PROTEASE
     Indication: PANCREATIC FAILURE
     Dosage: 1-2 CAPSULES WITH MEALS
     Route: 048
     Dates: start: 1997
  31. CREON [Concomitant]
     Active Substance: PANCRELIPASE AMYLASE\PANCRELIPASE LIPASE\PANCRELIPASE PROTEASE
     Indication: PANCREATIC FAILURE
     Dosage: 1-2 CAPSULES WITH MEALS
     Route: 048
     Dates: start: 2010
  32. LORATADINE. [Concomitant]
     Active Substance: LORATADINE
     Indication: HYPERSENSITIVITY
     Dosage: 10 MG, QD
     Route: 048
  33. NASONEX [Concomitant]
     Active Substance: MOMETASONE FUROATE
     Indication: HYPERSENSITIVITY
     Dosage: 50 MICROGRAM , 65 NASAL SPRAY PRN
     Route: 045
  34. VX-661/VX-770 [Suspect]
     Active Substance: IVACAFTOR\TEZACAFTOR
     Indication: CYSTIC FIBROSIS
     Dosage: UNK
     Route: 048
     Dates: start: 20190117
  35. POTASSIUM [Concomitant]
     Active Substance: POTASSIUM
     Indication: ELECTROLYTE SUBSTITUTION THERAPY
     Dosage: 10 MILLIMOLE
     Route: 042
     Dates: start: 20191011, end: 20191016
  36. CALCIUM VITAMIN D [Concomitant]
     Active Substance: CALCIUM\VITAMIN D
     Indication: VITAMIN SUPPLEMENTATION
     Dosage: 1 TABLET, PRN
     Route: 048
     Dates: start: 2015
  37. DOXYCYCLINE. [Concomitant]
     Active Substance: DOXYCYCLINE
     Dosage: 100 MG, BID
     Route: 048
  38. PHYTOMENADIONE [Concomitant]
     Active Substance: PHYTONADIONE
     Indication: HAEMOPTYSIS
     Dosage: 10 MG
  39. COLISTIN [Concomitant]
     Active Substance: COLISTIN
     Dosage: 2 DOSAGE FORM, BID
     Route: 055
  40. NEUROFEN [Concomitant]
     Active Substance: IBUPROFEN
     Dosage: UNK, PRN
  41. SODIUM CHLORIDE. [Concomitant]
     Active Substance: SODIUM CHLORIDE
     Dosage: FLO GRANULE
  42. PARACETAMOL [Concomitant]
     Active Substance: ACETAMINOPHEN
     Indication: PAIN
     Dosage: 1 GRAM, PRN
     Route: 048
     Dates: start: 2002
  43. AUGMENTIN DUO [Concomitant]
     Active Substance: AMOXICILLIN\CLAVULANATE POTASSIUM
     Dosage: UNK
     Dates: start: 20190930
  44. HYPERTONIC SALINE SOLUTION [Concomitant]
     Active Substance: SODIUM CHLORIDE
     Indication: CYSTIC FIBROSIS LUNG
     Dosage: 4 MILLI-INTERNATIONAL UNIT, BID
     Route: 055
     Dates: start: 2002
  45. GLUCOLYTE [GLUCOSE;POTASSIUM CHLORIDE;SODIUM CHLORIDE] [Concomitant]
     Dosage: 1 SACHET, QD
  46. PARACETAMOL [Concomitant]
     Active Substance: ACETAMINOPHEN
     Indication: MASTOIDITIS
     Dosage: 665 MG

REACTIONS (1)
  - Mastoiditis [Recovered/Resolved]

NARRATIVE: CASE EVENT DATE: 20191011
